FAERS Safety Report 23980320 (Version 3)
Quarter: 2024Q3

REPORT INFORMATION
  Report Type: Spontaneous
  Country: US (occurrence: US)
  Receive Date: 20240617
  Receipt Date: 20240807
  Transmission Date: 20241017
  Serious: No
  Sender: NOVARTIS
  Company Number: US-002147023-NVSC2024US125668

PATIENT
  Age: 65 Year
  Sex: Female
  Weight: 68.027 kg

DRUGS (3)
  1. LEQVIO [Suspect]
     Active Substance: INCLISIRAN SODIUM
     Indication: Hyperlipidaemia
     Dosage: 284 MG (284 MG /1.5ML), (DAY 0, DAY 90, EVERY 6 MONTHS)
     Route: 058
     Dates: start: 20240606
  2. LEQVIO [Suspect]
     Active Substance: INCLISIRAN SODIUM
     Indication: Coronary artery disease
  3. LEQVIO [Suspect]
     Active Substance: INCLISIRAN SODIUM
     Indication: Drug intolerance

REACTIONS (1)
  - Pain in extremity [Recovered/Resolved]

NARRATIVE: CASE EVENT DATE: 20240612
